FAERS Safety Report 7787098-8 (Version None)
Quarter: 2011Q3

REPORT INFORMATION
  Report Type: 
  Country: None (occurrence: None)
  Receive Date: 20110929
  Receipt Date: 20110919
  Transmission Date: 20111222
  Serious: Yes (Life-Threatening, Hospitalization)
  Sender: FDA-Public Use
  Company Number: US-BAYER-2011-035601

PATIENT
  Age: 42 Year
  Sex: Female
  Weight: 51.26 kg

DRUGS (6)
  1. ASCORBIC ACID [Concomitant]
     Dosage: UNK UNK, QD
     Route: 048
     Dates: start: 20100419, end: 20100429
  2. CALCIUM CARBONATE [Concomitant]
     Dosage: UNK UNK, QD
     Route: 048
     Dates: start: 20100419, end: 20100429
  3. YAZ [Suspect]
     Indication: CONTRACEPTION
     Dosage: UNK
     Route: 048
     Dates: start: 20080101, end: 20100401
  4. FLEXERIL [Concomitant]
     Dosage: UNK UNK, PRN
  5. YAZ [Suspect]
     Dosage: UNK
     Route: 048
     Dates: start: 20080101, end: 20100101
  6. FOLIC ACID [Concomitant]
     Dosage: UNK UNK, QD
     Route: 048
     Dates: start: 20100419, end: 20100429

REACTIONS (5)
  - PAIN IN EXTREMITY [None]
  - INJURY [None]
  - ERYTHEMA [None]
  - OEDEMA PERIPHERAL [None]
  - DEEP VEIN THROMBOSIS [None]
